FAERS Safety Report 24228288 (Version 1)
Quarter: 2024Q3

REPORT INFORMATION
  Report Type: Report from Study
  Country: US (occurrence: US)
  Receive Date: 20240820
  Receipt Date: 20240820
  Transmission Date: 20241016
  Serious: Yes (Hospitalization, Other)
  Sender: ABBVIE
  Company Number: US-ABBVIE-5881920

PATIENT
  Sex: Female

DRUGS (1)
  1. SKYRIZI [Suspect]
     Active Substance: RISANKIZUMAB-RZAA
     Indication: Crohn^s disease
     Dosage: DRUG END DATE 2024
     Route: 058
     Dates: start: 20240325

REACTIONS (2)
  - Rectal haemorrhage [Recovering/Resolving]
  - Rectal obstruction [Unknown]

NARRATIVE: CASE EVENT DATE: 20240101
